FAERS Safety Report 5713687-8 (Version None)
Quarter: 2008Q2

REPORT INFORMATION
  Report Type: 
  Country: None (occurrence: None)
  Receive Date: 20080418
  Receipt Date: 20080402
  Transmission Date: 20081010
  Serious: Yes (Other)
  Sender: FDA-Public Use
  Company Number: JP-1165594

PATIENT
  Age: 86 Year
  Sex: Female

DRUGS (2)
  1. IOPIDINE [Suspect]
     Indication: EYE LASER SURGERY
     Dosage: 1 GTT 30 MIN PRIOR TO SURGERY OPTHALMIC
     Route: 047
     Dates: start: 20080222, end: 20080222
  2. MYDRIN P(MYDRIN P) [Concomitant]

REACTIONS (2)
  - LOSS OF CONSCIOUSNESS [None]
  - SHOCK [None]
